FAERS Safety Report 9481956 (Version 4)
Quarter: 2013Q4

REPORT INFORMATION
  Report Type: Spontaneous
  Country: US (occurrence: US)
  Receive Date: 20130828
  Receipt Date: 20131120
  Transmission Date: 20140711
  Serious: Yes (Hospitalization, Other)
  Sender: FDA-Public Use
  Company Number: US-PFIZER INC-2013244309

PATIENT
  Age: 64 Year
  Sex: Female
  Weight: 125 kg

DRUGS (9)
  1. CELEBREX [Suspect]
     Indication: OSTEOARTHRITIS
     Dosage: 200 MG, 1X/DAY
     Route: 048
     Dates: start: 2001, end: 20130811
  2. VICODIN [Concomitant]
     Indication: MIGRAINE
     Dosage: HYDROCODONE BITARTRATE 5 AND PARACETAMOL 500MG, AS NEEDED
  3. ZOLOFT [Concomitant]
     Indication: DEPRESSION
     Dosage: 150 MG, 1X/DAY
  4. ALPRAZOLAM [Concomitant]
     Dosage: UNK
  5. DIOVAN [Concomitant]
     Dosage: UNK
  6. GABAPENTIN [Concomitant]
     Dosage: UNK
  7. ASA [Concomitant]
     Dosage: UNK
  8. PROTONIX [Concomitant]
     Dosage: UNK
  9. ALEVE [Concomitant]
     Dosage: UNK

REACTIONS (1)
  - Acute myocardial infarction [Recovered/Resolved]
